FAERS Safety Report 5131819-X (Version None)
Quarter: 2006Q4

REPORT INFORMATION
  Report Type: 
  Country: None (occurrence: None)
  Receive Date: 20061016
  Receipt Date: 20061003
  Transmission Date: 20070319
  Serious: Yes (Hospitalization, Other)
  Sender: FDA-Public Use
  Company Number: 2004193453FR

PATIENT
  Age: 33 Year
  Sex: Female
  Weight: 79 kg

DRUGS (2)
  1. SULFASALAZINE [Suspect]
     Indication: ANKYLOSING SPONDYLITIS
     Dosage: 2G/DAY, ORAL
     Route: 048
     Dates: start: 20031031, end: 20031128
  2. FELDENE [Suspect]
     Indication: ANKYLOSING SPONDYLITIS
     Dosage: 20 MG/DAY, ORAL
     Route: 048
     Dates: start: 20031031, end: 20031128

REACTIONS (10)
  - ALANINE AMINOTRANSFERASE INCREASED [None]
  - ANTI-HBC ANTIBODY POSITIVE [None]
  - ANTI-HBE ANTIBODY POSITIVE [None]
  - ANTI-HBS ANTIBODY POSITIVE [None]
  - DRUG HYPERSENSITIVITY [None]
  - DYSPHAGIA [None]
  - GAMMA-GLUTAMYLTRANSFERASE INCREASED [None]
  - LYMPHADENOPATHY [None]
  - SPLENOMEGALY [None]
  - STOMATITIS [None]
